FAERS Safety Report 4506773-1 (Version None)
Quarter: 2004Q4

REPORT INFORMATION
  Report Type: 
  Country: None (occurrence: None)
  Receive Date: 20041122
  Receipt Date: 20041111
  Transmission Date: 20050328
  Serious: Yes (Hospitalization)
  Sender: FDA-Public Use
  Company Number: US-ROCHE-386069

PATIENT
  Age: 45 Year
  Sex: Male

DRUGS (3)
  1. FUZEON [Suspect]
     Route: 065
  2. ANTIHYPERTENSIVE AGENTS NOS [Concomitant]
  3. ANTIRETROVIRAL NOS [Concomitant]

REACTIONS (2)
  - CHEST PAIN [None]
  - MYOCARDIAL INFARCTION [None]
